APPROVED DRUG PRODUCT: ADVIL CONGESTION RELIEF
Active Ingredient: IBUPROFEN; PHENYLEPHRINE HYDROCHLORIDE
Strength: 200MG;10MG
Dosage Form/Route: TABLET;ORAL
Application: N022565 | Product #001
Applicant: HALEON US HOLDINGS LLC
Approved: May 27, 2010 | RLD: Yes | RS: Yes | Type: OTC